FAERS Safety Report 6815734-9 (Version None)
Quarter: 2010Q3

REPORT INFORMATION
  Report Type: 
  Country: None (occurrence: None)
  Receive Date: 20100702
  Receipt Date: 20100622
  Transmission Date: 20110219
  Serious: Yes (Hospitalization)
  Sender: FDA-Public Use
  Company Number: DE-AMGEN-QUU420898

PATIENT
  Sex: Female
  Weight: 71 kg

DRUGS (8)
  1. ENBREL [Suspect]
     Indication: RHEUMATOID ARTHRITIS
     Route: 058
     Dates: start: 20080923, end: 20081030
  2. ENBREL [Suspect]
     Route: 058
     Dates: start: 20080101
  3. CALCIMAGON [Concomitant]
  4. PREDNISOLONE [Concomitant]
     Dates: start: 19990101
  5. PANTOZOL [Concomitant]
  6. LISINOPRIL AND HYDROCHLOROTHIAZIDE [Concomitant]
     Indication: HYPERTENSION
     Dosage: 20MG/12.5MG 1X1 DAY
     Dates: start: 20020101
  7. METFORMIN HCL [Concomitant]
     Indication: TYPE 2 DIABETES MELLITUS
     Dates: start: 20020101
  8. METFORMIN HCL [Concomitant]

REACTIONS (2)
  - PNEUMONIA [None]
  - SPINAL DISORDER [None]
